FAERS Safety Report 8403215-0 (Version None)
Quarter: 2012Q2

REPORT INFORMATION
  Report Type: 
  Country: None (occurrence: None)
  Receive Date: 20120601
  Receipt Date: 20120524
  Transmission Date: 20120825
  Serious: Yes (Other)
  Sender: FDA-Public Use
  Company Number: CA-MERCK-1105USA02694

PATIENT
  Age: 38 Month
  Sex: Male

DRUGS (3)
  1. ALBUTEROL [Concomitant]
     Route: 065
  2. FLOVENT [Concomitant]
     Indication: ASTHMA
     Dosage: 1 PUFF
     Route: 065
     Dates: start: 20100801
  3. SINGULAIR [Suspect]
     Indication: ASTHMA
     Route: 048
     Dates: start: 20100101, end: 20110101

REACTIONS (5)
  - DYSPNOEA [None]
  - ANGER [None]
  - SNEEZING [None]
  - AGGRESSION [None]
  - INAPPROPRIATE SCHEDULE OF DRUG ADMINISTRATION [None]
